FAERS Safety Report 5577966-X (Version None)
Quarter: 2007Q4

REPORT INFORMATION
  Report Type: 
  Country: None (occurrence: None)
  Receive Date: 20071231
  Receipt Date: 20071221
  Transmission Date: 20080405
  Serious: Yes (Life-Threatening)
  Sender: FDA-Public Use
  Company Number: AT-ROCHE-538324

PATIENT
  Age: 23 Year
  Sex: Female

DRUGS (1)
  1. VESANOID [Suspect]
     Indication: ACUTE MYELOID LEUKAEMIA
     Dosage: DOSAGE REPORTED:4-0-4
     Route: 048
     Dates: start: 20071205, end: 20071218

REACTIONS (1)
  - CAPILLARY LEAK SYNDROME [None]
